APPROVED DRUG PRODUCT: KETOROLAC TROMETHAMINE
Active Ingredient: KETOROLAC TROMETHAMINE
Strength: 0.5%
Dosage Form/Route: SOLUTION/DROPS;OPHTHALMIC
Application: A076109 | Product #001 | TE Code: AT
Applicant: APOTEX INC
Approved: Nov 5, 2009 | RLD: No | RS: No | Type: RX